FAERS Safety Report 25801299 (Version 2)
Quarter: 2025Q4

REPORT INFORMATION
  Report Type: Spontaneous
  Country: US (occurrence: US)
  Receive Date: 20250915
  Receipt Date: 20251015
  Transmission Date: 20260118
  Serious: No
  Sender: MICRO LABS LIMITED
  Company Number: US-862174955-ML2025-04565

PATIENT
  Sex: Female
  Weight: 70 kg

DRUGS (1)
  1. DORZOLAMIDE HYDROCHLORIDE\TIMOLOL MALEATE [Suspect]
     Active Substance: DORZOLAMIDE HYDROCHLORIDE\TIMOLOL MALEATE
     Indication: Intraocular pressure increased
     Dosage: DOSE: ONE DROP IN EACH EYE?FREQUENCY: TWICE A DAY?STRENGTH: 2%/0.5%
     Route: 047
     Dates: start: 2025

REACTIONS (3)
  - Product dose omission issue [Unknown]
  - No adverse event [Unknown]
  - Product container issue [Unknown]
